FAERS Safety Report 9798737 (Version 2)
Quarter: 2015Q3

REPORT INFORMATION
  Report Type: Spontaneous
  Country: US (occurrence: US)
  Receive Date: 20140106
  Receipt Date: 20150806
  Transmission Date: 20151125
  Serious: No
  Sender: FDA-Public Use
  Company Number: US-GILEAD-2010-0030001

PATIENT
  Age: 92 Year
  Sex: Male

DRUGS (12)
  1. LASIX [Concomitant]
     Active Substance: FUROSEMIDE
  2. COLACE [Concomitant]
     Active Substance: DOCUSATE SODIUM
  3. LETAIRIS [Suspect]
     Active Substance: AMBRISENTAN
     Indication: PULMONARY ARTERIAL HYPERTENSION
     Route: 048
     Dates: start: 20100330, end: 20100525
  4. GLIPIZIDE. [Concomitant]
     Active Substance: GLIPIZIDE
  5. ALLOPURINOL. [Concomitant]
     Active Substance: ALLOPURINOL
  6. LETAIRIS [Suspect]
     Active Substance: AMBRISENTAN
     Route: 048
     Dates: start: 20100525
  7. METOPROLOL [Concomitant]
     Active Substance: METOPROLOL
  8. FLOMAX [Concomitant]
     Active Substance: TAMSULOSIN HYDROCHLORIDE
  9. FINASTERIDE. [Concomitant]
     Active Substance: FINASTERIDE
  10. ASA [Concomitant]
     Active Substance: ASPIRIN
  11. METOLAZONE. [Concomitant]
     Active Substance: METOLAZONE
  12. WARFARIN [Concomitant]
     Active Substance: WARFARIN

REACTIONS (3)
  - Blood glucose increased [Not Recovered/Not Resolved]
  - Increased appetite [Not Recovered/Not Resolved]
  - Weight decreased [Not Recovered/Not Resolved]
